FAERS Safety Report 17552980 (Version 2)
Quarter: 2020Q2

REPORT INFORMATION
  Report Type: Report from Study
  Country: CA (occurrence: CA)
  Receive Date: 20200317
  Receipt Date: 20200508
  Transmission Date: 20200713
  Serious: Yes (Other)
  Sender: FDA-Public Use
  Company Number: CA-JNJFOC-20190738088

PATIENT
  Age: 68 Year
  Sex: Female
  Weight: 88.6 kg

DRUGS (2)
  1. STELARA [Suspect]
     Active Substance: USTEKINUMAB
     Route: 058
  2. STELARA [Suspect]
     Active Substance: USTEKINUMAB
     Indication: CROHN^S DISEASE
     Route: 058

REACTIONS (4)
  - Epigastric discomfort [Recovered/Resolved]
  - Therapeutic response decreased [Unknown]
  - Crohn^s disease [Recovered/Resolved]
  - Ear infection [Recovering/Resolving]

NARRATIVE: CASE EVENT DATE: 20190718
